FAERS Safety Report 8885834 (Version 2)
Quarter: 2013Q1

REPORT INFORMATION
  Report Type: Report from Study
  Country: FR (occurrence: FR)
  Receive Date: 20121102
  Receipt Date: 20130128
  Transmission Date: 20140127
  Serious: Yes (Hospitalization, Other)
  Sender: FDA-Public Use
  Company Number: FR-PFIZER INC-2012267487

PATIENT
  Age: 64 Year
  Sex: Female
  Weight: 118 kg

DRUGS (12)
  1. CRIZOTINIB [Suspect]
     Indication: LUNG NEOPLASM
     Dosage: 250 MG, 2X/DAY
     Route: 048
     Dates: start: 20120804
  2. CRIZOTINIB [Suspect]
     Dosage: 400 MG, 1X/DAY
     Route: 048
     Dates: start: 20121025
  3. CRIZOTINIB [Suspect]
     Dosage: 400 MG, 1X/DAY
     Route: 048
     Dates: start: 20121112, end: 20121125
  4. CRIZOTINIB [Suspect]
     Dosage: 400 MG, 1X/DAY
     Route: 048
     Dates: start: 20121226
  5. ISOPTINE [Concomitant]
     Indication: ARRHYTHMIA
     Dosage: 40 MG, 1X/DAY
     Route: 048
  6. ZOLTUM [Concomitant]
     Indication: GASTROOESOPHAGEAL REFLUX DISEASE
     Dosage: 20 MG, 2X/DAY
     Route: 048
  7. EFFEXOR [Concomitant]
     Indication: DEPRESSION
     Dosage: 75 MG, 1X/DAY
     Route: 048
  8. FORLAX [Concomitant]
     Indication: CONSTIPATION
     Dosage: UNK
     Route: 048
  9. FENTANYL [Concomitant]
     Dosage: 37 UG/72HOURS
  10. AUGMENTIN [Concomitant]
     Dosage: 3 G, 1X/DAY
     Route: 048
  11. TRIFLUCAN [Concomitant]
     Dosage: 50 MG, 1X/DAY
     Route: 048
  12. LASILIX [Concomitant]
     Dosage: 40 MG, 1X/DAY

REACTIONS (4)
  - Oedema peripheral [Recovered/Resolved]
  - Hypoproteinaemia [Recovered/Resolved]
  - Electrocardiogram QT prolonged [Unknown]
  - Depressive symptom [Unknown]
